FAERS Safety Report 14910785 (Version 1)
Quarter: 2018Q2

REPORT INFORMATION
  Report Type: Spontaneous
  Country: DE (occurrence: DE)
  Receive Date: 20180517
  Receipt Date: 20180517
  Transmission Date: 20180711
  Serious: Yes (Hospitalization)
  Sender: FDA-Public Use
  Company Number: DE-ALLERGAN-1825626US

PATIENT
  Age: 49 Year
  Sex: Female

DRUGS (7)
  1. ESCITALOPRAM OXALATE - BP [Suspect]
     Active Substance: ESCITALOPRAM OXALATE
     Indication: DEPRESSION
     Dosage: (20MG-0MG-0MG-0MG) IN THE MORNING
     Route: 065
     Dates: start: 2014
  2. MILNACIPRAN UNK [Suspect]
     Active Substance: MILNACIPRAN
     Indication: PRODUCT USED FOR UNKNOWN INDICATION
     Dosage: 200 MG, QD
     Route: 048
  3. MIRTAZAPINE. [Suspect]
     Active Substance: MIRTAZAPINE
     Indication: DEPRESSION
     Dosage: 45 MG, QHS (AT NIGHT)
     Route: 065
  4. LEVOTHYROXINE. [Concomitant]
     Active Substance: LEVOTHYROXINE
     Indication: PRODUCT USED FOR UNKNOWN INDICATION
     Dosage: 100 ?G (1-0-0-0) IN THE MORNING
     Route: 065
  5. LAMOTRIGINE. [Suspect]
     Active Substance: LAMOTRIGINE
     Indication: EPILEPSY
     Dosage: 100 MG, TID (1-1-1-0)
     Route: 065
  6. MILNACIPRAN UNK [Suspect]
     Active Substance: MILNACIPRAN
     Dosage: 50 MG, BID
     Route: 048
  7. MIRTAZAPINE. [Suspect]
     Active Substance: MIRTAZAPINE
     Dosage: 15 MG, QHS (AT NIGHT) (0-0-1)
     Route: 065

REACTIONS (9)
  - Depressive symptom [Recovered/Resolved]
  - Off label use [Unknown]
  - Normocytic anaemia [Unknown]
  - Listless [Unknown]
  - Alanine aminotransferase increased [Recovered/Resolved]
  - Aspartate aminotransferase increased [Recovered/Resolved]
  - Disturbance in attention [Unknown]
  - Gamma-glutamyltransferase increased [Recovered/Resolved]
  - Drug ineffective [Unknown]
